FAERS Safety Report 21673331 (Version 1)
Quarter: 2022Q4

REPORT INFORMATION
  Report Type: Spontaneous
  Country: US (occurrence: None)
  Receive Date: 20221201
  Receipt Date: 20221201
  Transmission Date: 20230112
  Serious: No
  Sender: FDA-Public Use
  Company Number: None

PATIENT
  Age: 20 Month
  Sex: Male
  Weight: 11.7 kg

DRUGS (3)
  1. HOMEOPATHICS [Suspect]
     Active Substance: HOMEOPATHICS
     Indication: Rhinorrhoea
     Dates: start: 20221127, end: 20221128
  2. HOMEOPATHICS [Suspect]
     Active Substance: HOMEOPATHICS
     Indication: Nasal congestion
  3. NEXIUM [Concomitant]
     Active Substance: ESOMEPRAZOLE MAGNESIUM

REACTIONS (1)
  - Sleep terror [None]

NARRATIVE: CASE EVENT DATE: 20221129
